FAERS Safety Report 24834083 (Version 1)
Quarter: 2025Q1

REPORT INFORMATION
  Report Type: Spontaneous
  Country: US (occurrence: US)
  Receive Date: 20250113
  Receipt Date: 20250113
  Transmission Date: 20250409
  Serious: Yes (Other)
  Sender: AMGEN
  Company Number: US-AMGEN-USASP2025003332

PATIENT
  Age: 90 Year
  Sex: Female

DRUGS (1)
  1. REPATHA [Suspect]
     Active Substance: EVOLOCUMAB
     Indication: Product used for unknown indication
     Route: 065

REACTIONS (5)
  - Macular degeneration [Unknown]
  - Bradykinesia [Unknown]
  - Device difficult to use [Unknown]
  - Drug dose omission by device [Unknown]
  - Incorrect disposal of product [Unknown]

NARRATIVE: CASE EVENT DATE: 20250102
